FAERS Safety Report 8067970-4 (Version None)
Quarter: 2012Q1

REPORT INFORMATION
  Report Type: 
  Country: None (occurrence: None)
  Receive Date: 20120124
  Receipt Date: 20110901
  Transmission Date: 20120608
  Serious: No
  Sender: FDA-Public Use
  Company Number: US-AMGEN-USASP2011045025

PATIENT
  Sex: Female

DRUGS (6)
  1. VITAMINS WITH MINERALS [Concomitant]
     Dosage: UNK
  2. PROLIA [Suspect]
     Indication: OSTEOPOROSIS POSTMENOPAUSAL
     Dosage: 60 MG, Q6MO
     Dates: start: 20110701
  3. EVISTA [Concomitant]
     Dosage: UNK
  4. WELLBUTRIN [Concomitant]
     Dosage: UNK
  5. LORAZEPAM [Concomitant]
     Dosage: UNK
  6. AMBIEN [Concomitant]
     Dosage: UNK

REACTIONS (3)
  - PAIN IN JAW [None]
  - TEMPOROMANDIBULAR JOINT SYNDROME [None]
  - PANIC ATTACK [None]
